FAERS Safety Report 23314347 (Version 1)
Quarter: 2023Q4

REPORT INFORMATION
  Report Type: Spontaneous
  Country: US (occurrence: US)
  Receive Date: 20231219
  Receipt Date: 20231219
  Transmission Date: 20240110
  Serious: No
  Sender: FDA-Public Use
  Company Number: US-ABBVIE-2308277US

PATIENT

DRUGS (6)
  1. BOTOX [Suspect]
     Active Substance: ONABOTULINUMTOXINA
     Indication: Migraine
     Dosage: TIME INTERVAL: AS NECESSARY: DOSE DESC: UNK UNK, SINGLE
  2. UBRELVY [Concomitant]
     Active Substance: UBROGEPANT
     Indication: Drug therapy
  3. EMGALITY [Concomitant]
     Active Substance: GALCANEZUMAB-GNLM
     Indication: Drug therapy
  4. TOPAMAX [Concomitant]
     Active Substance: TOPIRAMATE
     Indication: Drug therapy
  5. GABAPENTIN [Concomitant]
     Active Substance: GABAPENTIN
     Indication: Drug therapy
  6. NURTEC ODT [Concomitant]
     Active Substance: RIMEGEPANT SULFATE
     Indication: Drug therapy

REACTIONS (1)
  - Drug ineffective [Unknown]
